FAERS Safety Report 5451864-4 (Version None)
Quarter: 2007Q3

REPORT INFORMATION
  Report Type: 
  Country: None (occurrence: None)
  Receive Date: 20070803
  Receipt Date: 20070803
  Transmission Date: 20080115
  Serious: Yes (Other)
  Sender: FDA-Public Use
  Company Number: 2006-06-0951

PATIENT
  Age: 52 Year
  Sex: Female
  Weight: 68.9467 kg

DRUGS (5)
  1. INTRON A [Suspect]
     Indication: MALIGNANT MELANOMA
     Dosage: 17 MIU;SC, 15 MIU;SC
     Route: 058
     Dates: start: 20070501
  2. XANAX [Concomitant]
  3. IMITREX [Concomitant]
  4. COMPAZINE [Concomitant]
  5. PROZAC [Concomitant]

REACTIONS (1)
  - DEPRESSION [None]
